FAERS Safety Report 15565887 (Version 1)
Quarter: 2018Q4

REPORT INFORMATION
  Report Type: Spontaneous
  Country: US (occurrence: US)
  Receive Date: 20181025
  Receipt Date: 20181025
  Transmission Date: 20190205
  Serious: No
  Sender: FDA-Public Use
  Company Number: None

PATIENT
  Age: 49 Year
  Sex: Male
  Weight: 65.77 kg

DRUGS (1)
  1. QUEEN SLIMMING (DIETARY SUPPLEMENT\HERBALS) [Suspect]
     Active Substance: DIETARY SUPPLEMENT\HERBALS
     Indication: WEIGHT DECREASED
     Dates: start: 20180905, end: 20180906

REACTIONS (4)
  - Application site irritation [None]
  - Application site rash [None]
  - Application site pruritus [None]
  - Application site erythema [None]

NARRATIVE: CASE EVENT DATE: 20180905
